FAERS Safety Report 7668633-7 (Version None)
Quarter: 2011Q3

REPORT INFORMATION
  Report Type: 
  Country: None (occurrence: None)
  Receive Date: 20110808
  Receipt Date: 20110808
  Transmission Date: 20111222
  Serious: No
  Sender: FDA-Public Use
  Company Number: None

PATIENT
  Age: 79 Year
  Sex: Female
  Weight: 45.359 kg

DRUGS (1)
  1. PHENOBARBITAL + BELLADONNA [Suspect]
     Indication: GASTROINTESTINAL PAIN
     Dosage: ONE TABLET
     Dates: start: 20110319, end: 20110809

REACTIONS (6)
  - HEART RATE INCREASED [None]
  - FATIGUE [None]
  - VISUAL IMPAIRMENT [None]
  - MALAISE [None]
  - HEART RATE IRREGULAR [None]
  - DYSPNOEA [None]
